FAERS Safety Report 5637751-7 (Version None)
Quarter: 2008Q1

REPORT INFORMATION
  Report Type: 
  Country: None (occurrence: None)
  Receive Date: 20080219
  Receipt Date: 20080206
  Transmission Date: 20080703
  Serious: Yes (Hospitalization)
  Sender: FDA-Public Use
  Company Number: SPV1-2008-00249

PATIENT
  Age: 19 Month
  Sex: Male

DRUGS (1)
  1. ELAPRASE [Suspect]
     Indication: MUCOPOLYSACCHARIDOSIS II
     Dosage: 6 MG, 1X/WEEK, IV DRIP
     Route: 041
     Dates: start: 20070815, end: 20071123

REACTIONS (1)
  - PNEUMONIA INFLUENZAL [None]
